FAERS Safety Report 21388017 (Version 5)
Quarter: 2023Q4

REPORT INFORMATION
  Report Type: Spontaneous
  Country: US (occurrence: US)
  Receive Date: 20220928
  Receipt Date: 20231031
  Transmission Date: 20240109
  Serious: Yes (Other)
  Sender: FDA-Public Use
  Company Number: US-SA-SAC20220923000058

PATIENT
  Age: 51 Year
  Sex: Female
  Weight: 91.62 kg

DRUGS (23)
  1. DUPIXENT [Suspect]
     Active Substance: DUPILUMAB
     Indication: Chronic rhinosinusitis with nasal polyps
     Dosage: 300 MG, QOW
     Route: 065
     Dates: start: 20220316
  2. DUPIXENT [Suspect]
     Active Substance: DUPILUMAB
     Indication: Bronchiectasis
  3. DUPIXENT [Suspect]
     Active Substance: DUPILUMAB
     Indication: Lung disorder
  4. DUPIXENT [Suspect]
     Active Substance: DUPILUMAB
     Indication: Cystic fibrosis
  5. DUPIXENT [Suspect]
     Active Substance: DUPILUMAB
     Indication: Respiratory tract malformation
  6. DUPIXENT [Suspect]
     Active Substance: DUPILUMAB
     Indication: Asthma
  7. KLONOPIN [Concomitant]
     Active Substance: CLONAZEPAM
     Dosage: UNK
  8. TRAZODONE HCL [Concomitant]
     Active Substance: TRAZODONE HYDROCHLORIDE
     Dosage: 100 MG
     Route: 048
  9. SPIRIVA RESPIMAT [Concomitant]
     Active Substance: TIOTROPIUM BROMIDE
     Dosage: UNK
  10. TOBI [Concomitant]
     Active Substance: TOBRAMYCIN
     Dosage: UNK
  11. VITAMINS NOS [Concomitant]
     Active Substance: VITAMINS
     Dosage: UNK
  12. PULMOZYME [Concomitant]
     Active Substance: DORNASE ALFA
     Dosage: UNK
  13. XOPENEX [Concomitant]
     Active Substance: LEVALBUTEROL HYDROCHLORIDE
     Dosage: 1 MG
  14. CALCIUM\CHOLECALCIFEROL [Concomitant]
     Active Substance: CALCIUM\CHOLECALCIFEROL
     Dosage: 1000 MG
  15. VITAMIN D3 [Concomitant]
     Active Substance: CHOLECALCIFEROL
     Dosage: 500 MG
  16. AZITHROMYCIN [Concomitant]
     Active Substance: AZITHROMYCIN
     Dosage: 60 MG
  17. CYMBALTA [Concomitant]
     Active Substance: DULOXETINE HYDROCHLORIDE
     Dosage: 500 MG
  18. TOBRAMYCIN [Concomitant]
     Active Substance: TOBRAMYCIN
     Dosage: UNK
  19. OXYGEN [Concomitant]
     Active Substance: OXYGEN
     Dosage: UNK
  20. SODIUM CHLORIDE [Concomitant]
     Active Substance: SODIUM CHLORIDE
     Dosage: UNK
  21. BIFIDOBACTERIUM ANIMALIS LACTIS [Concomitant]
     Active Substance: BIFIDOBACTERIUM ANIMALIS LACTIS
     Dosage: UNK
  22. TRAZODONE [Concomitant]
     Active Substance: TRAZODONE HYDROCHLORIDE
  23. CLONIDINE [Concomitant]
     Active Substance: CLONIDINE
     Dosage: UNK

REACTIONS (6)
  - Bell^s palsy [Unknown]
  - Infection [Unknown]
  - Hypersensitivity [Not Recovered/Not Resolved]
  - Parosmia [Not Recovered/Not Resolved]
  - Product use in unapproved indication [Unknown]
  - Pseudomonas infection [Unknown]

NARRATIVE: CASE EVENT DATE: 20220101
